FAERS Safety Report 10599997 (Version 3)
Quarter: 2022Q1

REPORT INFORMATION
  Report Type: Spontaneous
  Country: FR (occurrence: None)
  Receive Date: 20141121
  Receipt Date: 20220125
  Transmission Date: 20220424
  Serious: Yes (Hospitalization, Other)
  Sender: FDA-Public Use
  Company Number: 2014SE86983

PATIENT
  Age: 81 Year
  Sex: Male

DRUGS (19)
  1. ESOMEPRAZOLE [Suspect]
     Active Substance: ESOMEPRAZOLE
     Route: 048
     Dates: start: 20141010
  2. CEFTRIAXONE SODIUM [Suspect]
     Active Substance: CEFTRIAXONE SODIUM
     Route: 065
     Dates: start: 20141013, end: 20141022
  3. ALLOPURINOL [Suspect]
     Active Substance: ALLOPURINOL
     Route: 048
  4. INDAPAMIDE\PERINDOPRIL [Suspect]
     Active Substance: INDAPAMIDE\PERINDOPRIL
     Route: 048
  5. TAMSULOSIN [Concomitant]
     Active Substance: TAMSULOSIN
  6. ZOCOR [Concomitant]
     Active Substance: SIMVASTATIN
  7. IMOVANE [Concomitant]
     Active Substance: ZOPICLONE
  8. FINASTERIDE [Concomitant]
     Active Substance: FINASTERIDE
  9. FENTANYL [Concomitant]
     Active Substance: FENTANYL
  10. ALBUTEROL [Concomitant]
     Active Substance: ALBUTEROL
  11. SERETIDE [Concomitant]
     Active Substance: FLUTICASONE PROPIONATE\SALMETEROL XINAFOATE
  12. AERIUS [Concomitant]
  13. RACECADOTRIL [Concomitant]
     Active Substance: RACECADOTRIL
  14. LANSOPRAZOLE [Concomitant]
     Active Substance: LANSOPRAZOLE
     Dates: end: 201410
  15. CALCIUM\CHOLECALCIFEROL [Concomitant]
     Active Substance: CALCIUM\CHOLECALCIFEROL
     Dates: start: 20141013
  16. CHOLECALCIFEROL [Concomitant]
     Active Substance: CHOLECALCIFEROL
     Dates: end: 20141013
  17. PREDNISONE [Concomitant]
     Active Substance: PREDNISONE
     Dates: start: 20141013
  18. POTASSIUM CHLORIDE [Concomitant]
     Active Substance: POTASSIUM CHLORIDE
     Dates: start: 20141013
  19. IMODIUM [Concomitant]
     Active Substance: LOPERAMIDE HYDROCHLORIDE
     Dates: start: 20141023, end: 20141025

REACTIONS (5)
  - Hypoalbuminaemia [Recovered/Resolved]
  - Renal failure [Recovered/Resolved]
  - Anaemia [Recovered/Resolved]
  - Agranulocytosis [Unknown]
  - Neutropenia [Unknown]

NARRATIVE: CASE EVENT DATE: 20141027
